FAERS Safety Report 25157447 (Version 1)
Quarter: 2025Q2

REPORT INFORMATION
  Report Type: Spontaneous
  Country: US (occurrence: US)
  Receive Date: 20250403
  Receipt Date: 20250403
  Transmission Date: 20250716
  Serious: Yes (Other)
  Sender: PURDUE
  Company Number: US-PURDUE PHARMA-USA-2025-0316491

PATIENT
  Age: 49 Year
  Sex: Female
  Weight: 95.25 kg

DRUGS (2)
  1. BUPRENORPHINE [Suspect]
     Active Substance: BUPRENORPHINE
     Indication: Pain
     Dosage: 8 MILLIGRAM, TID (3 TIMES A DAY)
     Route: 048
     Dates: start: 20200922
  2. BUPRENORPHINE [Suspect]
     Active Substance: BUPRENORPHINE
     Indication: Drug dependence

REACTIONS (9)
  - Tooth fracture [Not Recovered/Not Resolved]
  - Toothache [Not Recovered/Not Resolved]
  - Eating disorder [Not Recovered/Not Resolved]
  - Gingival pain [Not Recovered/Not Resolved]
  - Dental caries [Not Recovered/Not Resolved]
  - Gingival disorder [Not Recovered/Not Resolved]
  - Depression [Not Recovered/Not Resolved]
  - Dysphagia [Not Recovered/Not Resolved]
  - Tongue injury [Not Recovered/Not Resolved]

NARRATIVE: CASE EVENT DATE: 20210202
